FAERS Safety Report 18432956 (Version 1)
Quarter: 2020Q4

REPORT INFORMATION
  Report Type: Spontaneous
  Country: DK (occurrence: DK)
  Receive Date: 20201027
  Receipt Date: 20201027
  Transmission Date: 20210114
  Serious: Yes (Other)
  Sender: FDA-Public Use
  Company Number: DK-VALIDUS PHARMACEUTICALS LLC-DK-2020VAL000841

PATIENT

DRUGS (1)
  1. LASIX [Suspect]
     Active Substance: FUROSEMIDE
     Indication: END STAGE RENAL DISEASE
     Dosage: 0.5-2 G, QD
     Route: 065

REACTIONS (3)
  - Dermatitis bullous [Recovered/Resolved]
  - Rash vesicular [Recovered/Resolved]
  - Photosensitivity reaction [Recovered/Resolved]
